FAERS Safety Report 9014363 (Version 1)
Quarter: 2013Q1

REPORT INFORMATION
  Report Type: Spontaneous
  Country: US (occurrence: US)
  Receive Date: 20130115
  Receipt Date: 20130115
  Transmission Date: 20140127
  Serious: No
  Sender: FDA-Public Use
  Company Number: US-PFIZER INC-2013016985

PATIENT
  Age: 79 Year
  Sex: Female
  Weight: 35.83 kg

DRUGS (2)
  1. LYRICA [Suspect]
     Indication: PAIN IN EXTREMITY
     Dosage: 75 MG, 2X/DAY
     Route: 048
     Dates: start: 201211
  2. LYRICA [Suspect]
     Indication: NERVE INJURY
     Dosage: 75 MG, AS NEEDED
     Route: 048
     Dates: end: 201301

REACTIONS (3)
  - Pain in extremity [Not Recovered/Not Resolved]
  - Hypokinesia [Not Recovered/Not Resolved]
  - Incorrect dose administered [Unknown]
